FAERS Safety Report 11793749 (Version 1)
Quarter: 2015Q4

REPORT INFORMATION
  Report Type: Spontaneous
  Country: FR (occurrence: FR)
  Receive Date: 20151202
  Receipt Date: 20151202
  Transmission Date: 20160305
  Serious: Yes (Other)
  Sender: FDA-Public Use
  Company Number: FR-PFIZER INC-2015421054

PATIENT
  Age: 33 Year
  Sex: Female

DRUGS (2)
  1. ORELOX [Suspect]
     Active Substance: CEFPODOXIME
     Dosage: UNK
     Route: 065
  2. ZITHROMAX [Concomitant]
     Active Substance: AZITHROMYCIN DIHYDRATE
     Dosage: UNK

REACTIONS (2)
  - Vomiting [Unknown]
  - Gastrointestinal disorder [Unknown]
